FAERS Safety Report 4375994-3 (Version None)
Quarter: 2004Q2

REPORT INFORMATION
  Report Type: 
  Country: None (occurrence: None)
  Receive Date: 20040607
  Receipt Date: 20040521
  Transmission Date: 20050107
  Serious: Yes (Hospitalization)
  Sender: FDA-Public Use
  Company Number: 195082

PATIENT
  Age: 35 Year
  Sex: Female

DRUGS (4)
  1. AVONEX [Suspect]
     Indication: MULTIPLE SCLEROSIS
     Dosage: 30 MCG QW IM
     Route: 030
     Dates: start: 20030529, end: 20031001
  2. CELEXA [Concomitant]
  3. IBUPROFEN [Concomitant]
  4. TYLENOL [Concomitant]

REACTIONS (1)
  - PERIRECTAL ABSCESS [None]
